FAERS Safety Report 9342212 (Version 1)
Quarter: 2013Q2

REPORT INFORMATION
  Report Type: Spontaneous
  Country: US (occurrence: US)
  Receive Date: 20130611
  Receipt Date: 20130611
  Transmission Date: 20140414
  Serious: No
  Sender: FDA-Public Use
  Company Number: US-BIOGENIDEC-2013BI050114

PATIENT
  Age: 43 Year
  Sex: Female

DRUGS (7)
  1. AVONEX [Suspect]
     Indication: MULTIPLE SCLEROSIS
     Route: 030
     Dates: start: 20130411
  2. PROZAC [Concomitant]
     Indication: CONVULSION
  3. PROZAC [Concomitant]
     Indication: MIGRAINE
  4. KLONOPIN [Concomitant]
     Indication: CONVULSION
  5. KLONOPIN [Concomitant]
     Indication: MIGRAINE
  6. TOPAMAX [Concomitant]
     Indication: CONVULSION
  7. TOPAMAX [Concomitant]
     Indication: MIGRAINE

REACTIONS (8)
  - Fear of injection [Not Recovered/Not Resolved]
  - Tremor [Recovered/Resolved]
  - Restless legs syndrome [Unknown]
  - Drug administered at inappropriate site [Unknown]
  - Influenza like illness [Not Recovered/Not Resolved]
  - Nausea [Not Recovered/Not Resolved]
  - Arthralgia [Not Recovered/Not Resolved]
  - Pain in extremity [Not Recovered/Not Resolved]
